FAERS Safety Report 7481355-0 (Version None)
Quarter: 2011Q2

REPORT INFORMATION
  Report Type: 
  Country: None (occurrence: None)
  Receive Date: 20110516
  Receipt Date: 20110510
  Transmission Date: 20111010
  Serious: Yes (Other)
  Sender: FDA-Public Use
  Company Number: CH-SANOFI-AVENTIS-2011SA026665

PATIENT
  Age: 47 Year
  Sex: Female
  Weight: 64.5 kg

DRUGS (8)
  1. ISCADOR [Concomitant]
     Route: 058
  2. TRIPTORELIN [Concomitant]
     Route: 030
     Dates: start: 20110201, end: 20110329
  3. DEXAMETHASONE [Concomitant]
     Indication: PREMEDICATION
     Route: 042
     Dates: start: 20110404, end: 20110406
  4. DEXAMETHASONE [Concomitant]
     Route: 042
     Dates: start: 20110405, end: 20110405
  5. TAXOTERE [Suspect]
     Indication: BREAST CANCER
     Route: 042
     Dates: start: 20110405, end: 20110405
  6. NAVOBAN [Concomitant]
     Route: 042
  7. NAVOBAN [Concomitant]
     Route: 048
  8. ZOLPIDEM [Concomitant]

REACTIONS (2)
  - POLYDIPSIA [None]
  - ARTHRALGIA [None]
